FAERS Safety Report 10470387 (Version 1)
Quarter: 2014Q3

REPORT INFORMATION
  Report Type: Spontaneous
  Country: US (occurrence: None)
  Receive Date: 20140909
  Receipt Date: 20140909
  Transmission Date: 20150326
  Serious: Yes (Disabling, Other)
  Sender: FDA-Public Use
  Company Number: 1352920

PATIENT
  Age: 92 Year
  Sex: Male

DRUGS (6)
  1. TRIAZOLAM. [Concomitant]
     Active Substance: TRIAZOLAM
  2. FUROSEMIDE (FUROSEMIDE) [Concomitant]
     Active Substance: FUROSEMIDE
  3. COSOPT (DORZOLAMIDE HYDROCHLORIDE, TIMOLOL MALEATE) [Concomitant]
  4. CASODEX (BICALUTAMIDE) [Concomitant]
  5. LUCENTIS [Suspect]
     Active Substance: RANIBIZUMAB
     Dosage: 0.05 MG 1 IN 4 WEEK) INTRAVITREAL
     Dates: start: 20070712, end: 20140121
  6. LASIX [Concomitant]
     Active Substance: FUROSEMIDE

REACTIONS (1)
  - Endophthalmitis [None]

NARRATIVE: CASE EVENT DATE: 20140125
